FAERS Safety Report 11090815 (Version 1)
Quarter: 2015Q2

REPORT INFORMATION
  Report Type: Spontaneous
  Country: US (occurrence: US)
  Receive Date: 20150505
  Receipt Date: 20150505
  Transmission Date: 20150821
  Serious: Yes (Hospitalization)
  Sender: FDA-Public Use
  Company Number: US-MYLANLABS-2015M1014968

PATIENT

DRUGS (1)
  1. NAFCILLIN [Suspect]
     Active Substance: NAFCILLIN\NAFCILLIN SODIUM
     Indication: SEPTIC ARTHRITIS STAPHYLOCOCCAL
     Route: 042

REACTIONS (1)
  - Hypersensitivity vasculitis [Recovered/Resolved]
